FAERS Safety Report 24580757 (Version 2)
Quarter: 2024Q4

REPORT INFORMATION
  Report Type: Report from Study
  Country: IL (occurrence: IL)
  Receive Date: 20241105
  Receipt Date: 20241119
  Transmission Date: 20250115
  Serious: Yes (Hospitalization)
  Sender: ABBVIE
  Company Number: IL-ABBVIE-5986440

PATIENT
  Age: 65 Year
  Sex: Male

DRUGS (2)
  1. SKYRIZI [Suspect]
     Active Substance: RISANKIZUMAB-RZAA
     Indication: Psoriasis
     Dosage: FORM STRENGTH: 150 MILLIGRAM
     Route: 058
     Dates: start: 20231008
  2. ARCOXIA [Suspect]
     Active Substance: ETORICOXIB
     Indication: Back pain
     Dosage: STOP DATE TEXT: UNKNOWN
     Route: 065
     Dates: start: 2024

REACTIONS (5)
  - Hypersensitivity [Recovered/Resolved]
  - Back pain [Unknown]
  - Adverse drug reaction [Recovered/Resolved]
  - Blister [Recovered/Resolved]
  - Infection [Recovered/Resolved]

NARRATIVE: CASE EVENT DATE: 20240831
